FAERS Safety Report 24746156 (Version 2)
Quarter: 2024Q4

REPORT INFORMATION
  Report Type: Spontaneous
  Country: BE (occurrence: BE)
  Receive Date: 20241218
  Receipt Date: 20241227
  Transmission Date: 20250114
  Serious: No
  Sender: TOLMAR
  Company Number: BE-RECORDATI-2024009208

PATIENT
  Sex: Male

DRUGS (1)
  1. ELIGARD [Suspect]
     Active Substance: LEUPROLIDE ACETATE
     Indication: Product used for unknown indication
     Dosage: 45 MILLIGRAM

REACTIONS (2)
  - Intercepted product preparation error [Unknown]
  - Device leakage [Unknown]
